FAERS Safety Report 5287927-6 (Version None)
Quarter: 2007Q1

REPORT INFORMATION
  Report Type: 
  Country: None (occurrence: None)
  Receive Date: 20070330
  Receipt Date: 20070319
  Transmission Date: 20070707
  Serious: Yes (Life-Threatening, Hospitalization)
  Sender: FDA-Public Use
  Company Number: S06-USA-04278-01

PATIENT
  Age: 44 Year
  Sex: Female

DRUGS (12)
  1. LEXAPRO [Suspect]
     Indication: ANXIETY
     Dosage: 20 MG QD PO
     Route: 048
     Dates: start: 20040101
  2. LEXAPRO [Suspect]
     Indication: DEPRESSION
     Dosage: 20 MG QD PO
     Route: 048
     Dates: start: 20040101
  3. LOVENOX [Concomitant]
  4. LAMICTAL [Concomitant]
  5. PREVACID [Concomitant]
  6. SINGULAIR [Concomitant]
  7. ADVAIR (FLUTICASONE) [Concomitant]
  8. ALBUTEROL [Concomitant]
  9. ATIVAN [Concomitant]
  10. PHENERGAN [Concomitant]
  11. CLONAZEPAM [Concomitant]
  12. WELLBUTRIN [Concomitant]

REACTIONS (23)
  - AGITATION [None]
  - ANXIETY [None]
  - BLOOD PH DECREASED [None]
  - CONTUSION [None]
  - DEPRESSED MOOD [None]
  - DRUG INEFFECTIVE [None]
  - FALL [None]
  - FEELING HOT [None]
  - FRACTURED SACRUM [None]
  - GENERAL PHYSICAL HEALTH DETERIORATION [None]
  - HAEMATOMA [None]
  - HOSTILITY [None]
  - JAW FRACTURE [None]
  - LUMBAR VERTEBRAL FRACTURE [None]
  - MULTIPLE FRACTURES [None]
  - NECK PAIN [None]
  - PELVIC FRACTURE [None]
  - RADIAL PULSE [None]
  - SCIATIC NERVE INJURY [None]
  - SUICIDAL IDEATION [None]
  - SUICIDE ATTEMPT [None]
  - ULNA FRACTURE [None]
  - WHITE BLOOD CELL COUNT INCREASED [None]
